FAERS Safety Report 6221191-6 (Version None)
Quarter: 2009Q2

REPORT INFORMATION
  Report Type: 
  Country: None (occurrence: None)
  Receive Date: 20090605
  Receipt Date: 20090526
  Transmission Date: 20091009
  Serious: Yes (Hospitalization, Other)
  Sender: FDA-Public Use
  Company Number: FR-WYE-H09535809

PATIENT
  Age: 68 Year
  Sex: Male

DRUGS (14)
  1. PANTOPRAZOLE SODIUM [Suspect]
     Dosage: ORAL
     Route: 048
     Dates: start: 20081118, end: 20081205
  2. DI-HYDAN (PHENYTOIN, ) [Suspect]
     Dosage: ORAL
     Route: 048
     Dates: start: 20081107, end: 20081219
  3. LOVENOX [Suspect]
     Dosage: 0.4 MG, FREQUENCY UNSPECIFIED
     Dates: start: 20081107, end: 20081219
  4. OMEPRAZOLE [Suspect]
     Dates: start: 20081205, end: 20081219
  5. NIMOTOP [Suspect]
     Dosage: ORAL ; ORAL
     Route: 048
     Dates: start: 20081107, end: 20081205
  6. NIMOTOP [Suspect]
     Dosage: ORAL ; ORAL
     Route: 048
     Dates: start: 20081210, end: 20081215
  7. TAHOR (ATORVASTATION, ) [Suspect]
     Dates: start: 20081110, end: 20081219
  8. ACETAMINOPHEN [Concomitant]
  9. CIPROFLOXACIN HCL [Concomitant]
  10. TRAMADOL HCL [Concomitant]
  11. CORVASAL (MOLSIDOMINE) [Concomitant]
  12. XATRAL (ALFUZOSIN) [Concomitant]
  13. ACETAMINOPHEN [Concomitant]
  14. CIPROFLOXACIN HCL [Concomitant]

REACTIONS (10)
  - ANTI-HBS ANTIBODY POSITIVE [None]
  - BLOOD CALCIUM DECREASED [None]
  - BLOOD PRESSURE DECREASED [None]
  - BLOOD SODIUM DECREASED [None]
  - CYTOLYTIC HEPATITIS [None]
  - CYTOMEGALOVIRUS TEST POSITIVE [None]
  - DRUG RASH WITH EOSINOPHILIA AND SYSTEMIC SYMPTOMS [None]
  - HAEMOGLOBIN DECREASED [None]
  - PURPURA [None]
  - PYREXIA [None]
